FAERS Safety Report 6249100-4 (Version None)
Quarter: 2009Q2

REPORT INFORMATION
  Report Type: 
  Country: None (occurrence: None)
  Receive Date: 20090625
  Receipt Date: 20090612
  Transmission Date: 20091009
  Serious: No
  Sender: FDA-Public Use
  Company Number: 2009-198634-NL

PATIENT
  Age: 58 Year
  Sex: Male

DRUGS (5)
  1. MIRTAZAPINE [Suspect]
     Dosage: 15 MG
     Dates: start: 20090210, end: 20090224
  2. RISEDRONATE SODIUM [Concomitant]
  3. MELOXICAM [Concomitant]
  4. ALLOPURINOL [Concomitant]
  5. TEMAZEPAM [Concomitant]

REACTIONS (2)
  - DIPLOPIA [None]
  - OPHTHALMOPLEGIA [None]
